FAERS Safety Report 18709550 (Version 1)
Quarter: 2021Q1

REPORT INFORMATION
  Report Type: Spontaneous
  Country: US (occurrence: US)
  Receive Date: 20210107
  Receipt Date: 20210107
  Transmission Date: 20210419
  Serious: No
  Sender: FDA-Public Use
  Company Number: US-EMD SERONO-7047215

PATIENT
  Age: 58 Year
  Sex: Female

DRUGS (2)
  1. REBIF [Suspect]
     Active Substance: INTERFERON BETA-1A
     Indication: MULTIPLE SCLEROSIS
     Dosage: REBIJECT II
     Route: 058
     Dates: start: 20100419, end: 20110630
  2. REBIF [Suspect]
     Active Substance: INTERFERON BETA-1A
     Route: 058
     Dates: start: 20160830

REACTIONS (5)
  - Injection site erythema [Unknown]
  - Weight increased [Unknown]
  - Memory impairment [Unknown]
  - Fatigue [Unknown]
  - Injection site bruising [Unknown]
